FAERS Safety Report 9393509 (Version 3)
Quarter: 2013Q3

REPORT INFORMATION
  Report Type: Spontaneous
  Country: US (occurrence: US)
  Receive Date: 20130710
  Receipt Date: 20130913
  Transmission Date: 20140515
  Serious: Yes (Other)
  Sender: FDA-Public Use
  Company Number: US-BAYER-2013-083973

PATIENT
  Age: 87 Year
  Sex: Female
  Weight: 84.37 kg

DRUGS (9)
  1. XARELTO [Suspect]
     Indication: CEREBROVASCULAR ACCIDENT PROPHYLAXIS
     Dosage: 20 MG, UNK
     Route: 048
     Dates: start: 20130606, end: 20130630
  2. XARELTO [Interacting]
     Indication: ATRIAL FIBRILLATION
     Dosage: UNK
     Route: 048
     Dates: start: 20130723
  3. ACETYLSALICYLIC ACID({=100 MG) [Interacting]
     Indication: CARDIAC DISORDER
     Dosage: 81 MG, ONCE
     Route: 048
     Dates: start: 20130606, end: 20130729
  4. OMEPRAZOLE [Concomitant]
     Indication: GASTROOESOPHAGEAL REFLUX DISEASE
     Dosage: 20 MG, QD
     Route: 048
  5. SYNTHROID [Concomitant]
     Indication: THYROID DISORDER
     Dosage: 75 MG, UNK
     Route: 048
  6. ZOCOR [Concomitant]
     Indication: BLOOD CHOLESTEROL ABNORMAL
     Dosage: 20 MG, UNK
     Route: 048
  7. METOPROLOL [Concomitant]
     Indication: HYPERTENSION
     Dosage: 25 MG, UNK
     Route: 048
     Dates: start: 20130606
  8. TRAMADOL [Concomitant]
     Indication: BACK PAIN
     Dosage: 50 MG, 6 PER DAY
     Route: 048
  9. TRAMADOL [Concomitant]
     Indication: SCOLIOSIS

REACTIONS (3)
  - Haematuria [Recovered/Resolved]
  - Blood pressure fluctuation [Unknown]
  - Rash erythematous [Recovered/Resolved]
